FAERS Safety Report 6716421-8 (Version None)
Quarter: 2010Q2

REPORT INFORMATION
  Report Type: 
  Country: None (occurrence: None)
  Receive Date: 20100507
  Receipt Date: 20100502
  Transmission Date: 20101027
  Serious: Yes (Hospitalization)
  Sender: FDA-Public Use
  Company Number: US-ABBOTT-09P-163-0588327-00

PATIENT
  Sex: Male
  Weight: 46.308 kg

DRUGS (16)
  1. HUMIRA [Suspect]
     Indication: RHEUMATOID ARTHRITIS
     Route: 058
     Dates: start: 20060101
  2. HUMIRA [Suspect]
     Route: 058
  3. SONATA [Concomitant]
     Indication: DRUG USE FOR UNKNOWN INDICATION
  4. CAPOZIDE 25/15 [Concomitant]
     Indication: DRUG USE FOR UNKNOWN INDICATION
     Dosage: 25/15
  5. COLACE [Concomitant]
     Indication: DRUG USE FOR UNKNOWN INDICATION
  6. TOPROL-XL [Concomitant]
     Indication: DRUG USE FOR UNKNOWN INDICATION
  7. PRILOSEC [Concomitant]
     Indication: DRUG USE FOR UNKNOWN INDICATION
  8. FOLIC ACID [Concomitant]
     Indication: DRUG USE FOR UNKNOWN INDICATION
  9. PLAQUENIL [Concomitant]
     Indication: DRUG USE FOR UNKNOWN INDICATION
  10. RHINOCORT [Concomitant]
     Indication: DRUG USE FOR UNKNOWN INDICATION
     Dosage: EACH NOSE
  11. METHOTREXATE [Concomitant]
     Indication: DRUG USE FOR UNKNOWN INDICATION
  12. BIOTIN FORTE [Concomitant]
     Indication: DRUG USE FOR UNKNOWN INDICATION
  13. OLIVE OIL [Concomitant]
     Indication: DRUG USE FOR UNKNOWN INDICATION
  14. ACTONEL [Concomitant]
     Indication: DRUG USE FOR UNKNOWN INDICATION
  15. PERCET [Concomitant]
     Indication: DRUG USE FOR UNKNOWN INDICATION
  16. CIPRO [Concomitant]
     Indication: DRUG USE FOR UNKNOWN INDICATION

REACTIONS (4)
  - DRUG DOSE OMISSION [None]
  - FALL [None]
  - HIP FRACTURE [None]
  - NODULE ON EXTREMITY [None]
